FAERS Safety Report 5619513-X (Version None)
Quarter: 2008Q1

REPORT INFORMATION
  Report Type: 
  Country: None (occurrence: None)
  Receive Date: 20080110
  Receipt Date: 20071113
  Transmission Date: 20080703
  Serious: Yes (Hospitalization)
  Sender: FDA-Public Use
  Company Number: 0SCN-PR-0711S-0454

PATIENT
  Age: 51 Year
  Sex: Female

DRUGS (1)
  1. OMNISCAN [Suspect]
     Indication: BREAST PAIN
     Dosage: 20 ML, SINGLE DOSE, I.V.
     Route: 042
     Dates: start: 20071112, end: 20071112

REACTIONS (2)
  - CONVULSION [None]
  - NAUSEA [None]
